FAERS Safety Report 25656000 (Version 1)
Quarter: 2025Q3

REPORT INFORMATION
  Report Type: Spontaneous
  Country: US (occurrence: US)
  Receive Date: 20250807
  Receipt Date: 20250807
  Transmission Date: 20251021
  Serious: No
  Sender: ELI LILLY AND COMPANY
  Company Number: US-ELI_LILLY_AND_COMPANY-US202507029468

PATIENT
  Age: 64 Year
  Sex: Female

DRUGS (36)
  1. ZEPBOUND [Suspect]
     Active Substance: TIRZEPATIDE
     Indication: Hypertension
     Route: 058
     Dates: start: 2024
  2. ZEPBOUND [Suspect]
     Active Substance: TIRZEPATIDE
     Indication: Hypertension
     Route: 058
     Dates: start: 2024
  3. ZEPBOUND [Suspect]
     Active Substance: TIRZEPATIDE
     Indication: Hypertension
     Route: 058
     Dates: start: 2024
  4. ZEPBOUND [Suspect]
     Active Substance: TIRZEPATIDE
     Indication: Hypertension
     Route: 058
     Dates: start: 2024
  5. ZEPBOUND [Suspect]
     Active Substance: TIRZEPATIDE
     Indication: Weight control
  6. ZEPBOUND [Suspect]
     Active Substance: TIRZEPATIDE
     Indication: Weight control
  7. ZEPBOUND [Suspect]
     Active Substance: TIRZEPATIDE
     Indication: Weight control
  8. ZEPBOUND [Suspect]
     Active Substance: TIRZEPATIDE
     Indication: Weight control
  9. ZEPBOUND [Suspect]
     Active Substance: TIRZEPATIDE
     Indication: Glucose tolerance impaired
  10. ZEPBOUND [Suspect]
     Active Substance: TIRZEPATIDE
     Indication: Glucose tolerance impaired
  11. ZEPBOUND [Suspect]
     Active Substance: TIRZEPATIDE
     Indication: Glucose tolerance impaired
  12. ZEPBOUND [Suspect]
     Active Substance: TIRZEPATIDE
     Indication: Glucose tolerance impaired
  13. ZEPBOUND [Suspect]
     Active Substance: TIRZEPATIDE
     Indication: Weight control
     Route: 058
  14. ZEPBOUND [Suspect]
     Active Substance: TIRZEPATIDE
     Indication: Weight control
     Route: 058
  15. ZEPBOUND [Suspect]
     Active Substance: TIRZEPATIDE
     Indication: Weight control
     Route: 058
  16. ZEPBOUND [Suspect]
     Active Substance: TIRZEPATIDE
     Indication: Weight control
     Route: 058
  17. ZEPBOUND [Suspect]
     Active Substance: TIRZEPATIDE
     Indication: Glucose tolerance impaired
  18. ZEPBOUND [Suspect]
     Active Substance: TIRZEPATIDE
     Indication: Glucose tolerance impaired
  19. ZEPBOUND [Suspect]
     Active Substance: TIRZEPATIDE
     Indication: Glucose tolerance impaired
  20. ZEPBOUND [Suspect]
     Active Substance: TIRZEPATIDE
     Indication: Glucose tolerance impaired
  21. ZEPBOUND [Suspect]
     Active Substance: TIRZEPATIDE
     Indication: Hypertension
  22. ZEPBOUND [Suspect]
     Active Substance: TIRZEPATIDE
     Indication: Hypertension
  23. ZEPBOUND [Suspect]
     Active Substance: TIRZEPATIDE
     Indication: Hypertension
  24. ZEPBOUND [Suspect]
     Active Substance: TIRZEPATIDE
     Indication: Hypertension
  25. ZEPBOUND [Suspect]
     Active Substance: TIRZEPATIDE
     Indication: Weight control
     Route: 058
     Dates: start: 202507
  26. ZEPBOUND [Suspect]
     Active Substance: TIRZEPATIDE
     Indication: Weight control
     Route: 058
     Dates: start: 202507
  27. ZEPBOUND [Suspect]
     Active Substance: TIRZEPATIDE
     Indication: Weight control
     Route: 058
     Dates: start: 202507
  28. ZEPBOUND [Suspect]
     Active Substance: TIRZEPATIDE
     Indication: Weight control
     Route: 058
     Dates: start: 202507
  29. ZEPBOUND [Suspect]
     Active Substance: TIRZEPATIDE
     Indication: Glucose tolerance impaired
  30. ZEPBOUND [Suspect]
     Active Substance: TIRZEPATIDE
     Indication: Glucose tolerance impaired
  31. ZEPBOUND [Suspect]
     Active Substance: TIRZEPATIDE
     Indication: Glucose tolerance impaired
  32. ZEPBOUND [Suspect]
     Active Substance: TIRZEPATIDE
     Indication: Glucose tolerance impaired
  33. ZEPBOUND [Suspect]
     Active Substance: TIRZEPATIDE
     Indication: Hypertension
  34. ZEPBOUND [Suspect]
     Active Substance: TIRZEPATIDE
     Indication: Hypertension
  35. ZEPBOUND [Suspect]
     Active Substance: TIRZEPATIDE
     Indication: Hypertension
  36. ZEPBOUND [Suspect]
     Active Substance: TIRZEPATIDE
     Indication: Hypertension

REACTIONS (4)
  - Hunger [Unknown]
  - Incorrect dose administered [Unknown]
  - Injection site pain [Unknown]
  - Injection site coldness [Unknown]

NARRATIVE: CASE EVENT DATE: 20250701
